FAERS Safety Report 10955206 (Version 1)
Quarter: 2015Q1

REPORT INFORMATION
  Report Type: Spontaneous
  Country: FI (occurrence: FI)
  Receive Date: 20150326
  Receipt Date: 20150326
  Transmission Date: 20150721
  Serious: Yes (Hospitalization, Other)
  Sender: FDA-Public Use
  Company Number: FI-AMGEN-FINSP2015028046

PATIENT
  Age: 68 Year
  Sex: Male

DRUGS (4)
  1. XGEVA [Suspect]
     Active Substance: DENOSUMAB
     Indication: METASTASES TO BONE
     Dosage: 120 MG, UNK
     Route: 058
     Dates: start: 20140221
  2. CASODEX [Concomitant]
     Active Substance: BICALUTAMIDE
     Dosage: 100 MG, UNK
     Route: 048
     Dates: start: 20140221
  3. KALCIPOS-D [Concomitant]
     Active Substance: CALCIUM CARBONATE\CHOLECALCIFEROL
     Dosage: 2 DF, UNK
     Route: 048
     Dates: start: 20140221
  4. ENANTON [Concomitant]
     Active Substance: LEUPROLIDE ACETATE
     Dosage: 11.2 MG, UNK
     Route: 058
     Dates: start: 20140221

REACTIONS (1)
  - Osteonecrosis of jaw [Recovered/Resolved]

NARRATIVE: CASE EVENT DATE: 20140815
